FAERS Safety Report 6601426-8 (Version None)
Quarter: 2010Q1

REPORT INFORMATION
  Report Type: 
  Country: None (occurrence: None)
  Receive Date: 20100225
  Receipt Date: 20100125
  Transmission Date: 20100710
  Serious: No
  Sender: FDA-Public Use
  Company Number: US-BAYER-201011303BCC

PATIENT
  Age: 56 Year
  Sex: Female
  Weight: 84 kg

DRUGS (8)
  1. ALEVE (CAPLET) [Suspect]
     Indication: ROTATOR CUFF SYNDROME
     Dosage: TOTAL DAILY DOSE: 220 MG  UNIT DOSE: 220 MG
     Route: 048
     Dates: start: 20100119, end: 20100121
  2. ALEVE (CAPLET) [Suspect]
     Dosage: TOTAL DAILY DOSE: 220 MG  UNIT DOSE: 220 MG
     Route: 048
     Dates: start: 20100123
  3. METFORMIN HCL [Concomitant]
     Route: 065
  4. PREVACID [Concomitant]
     Route: 065
  5. HYDROCODONE [Concomitant]
     Route: 065
  6. STEROID [Concomitant]
     Route: 065
  7. SUPPLEMENTS [Concomitant]
     Route: 065
  8. TRIAMCINOLONE ACETONIDE [Concomitant]
     Route: 065

REACTIONS (3)
  - HYPERSENSITIVITY [None]
  - SKIN WARM [None]
  - URTICARIA [None]
